FAERS Safety Report 20577058 (Version 1)
Quarter: 2022Q1

REPORT INFORMATION
  Report Type: Spontaneous
  Country: US (occurrence: None)
  Receive Date: 20220309
  Receipt Date: 20220309
  Transmission Date: 20220423
  Serious: Yes (Hospitalization)
  Sender: FDA-Public Use
  Company Number: None

PATIENT
  Sex: Female

DRUGS (2)
  1. ADAKVEO [Suspect]
     Active Substance: CRIZANLIZUMAB-TMCA
     Indication: Sickle cell anaemia with crisis
     Dosage: 30ML MONTHLY INTRAVENOUSLY
     Route: 042
     Dates: start: 202103
  2. DEFERASIROX [Concomitant]
     Active Substance: DEFERASIROX

REACTIONS (2)
  - Weight decreased [None]
  - Sickle cell anaemia with crisis [None]
